FAERS Safety Report 17474792 (Version 1)
Quarter: 2020Q1

REPORT INFORMATION
  Report Type: Report from Study
  Country: CA (occurrence: CA)
  Receive Date: 20200228
  Receipt Date: 20200228
  Transmission Date: 20200409
  Serious: Yes (Hospitalization, Other)
  Sender: FDA-Public Use
  Company Number: CA-JNJFOC-20190719681

PATIENT
  Age: 54 Year
  Sex: Female
  Weight: 50.7 kg

DRUGS (4)
  1. PREDNISONE. [Concomitant]
     Active Substance: PREDNISONE
     Route: 042
     Dates: start: 20181129
  2. STELARA [Suspect]
     Active Substance: USTEKINUMAB
     Indication: CROHN^S DISEASE
     Route: 042
     Dates: start: 20181129
  3. STELARA [Suspect]
     Active Substance: USTEKINUMAB
     Route: 058
  4. PREDNISONE. [Concomitant]
     Active Substance: PREDNISONE
     Indication: PRODUCT USED FOR UNKNOWN INDICATION
     Route: 065
     Dates: start: 20190628

REACTIONS (3)
  - Q fever [Unknown]
  - Incorrect dose administered [Unknown]
  - Anaemia [Unknown]

NARRATIVE: CASE EVENT DATE: 20190628
